FAERS Safety Report 6474793-6 (Version None)
Quarter: 2009Q4

REPORT INFORMATION
  Report Type: 
  Country: None (occurrence: None)
  Receive Date: 20091204
  Receipt Date: 20090804
  Transmission Date: 20100525
  Serious: Yes (Hospitalization)
  Sender: FDA-Public Use
  Company Number: BR-ELI_LILLY_AND_COMPANY-BR200902001084

PATIENT
  Sex: Female
  Weight: 73 kg

DRUGS (9)
  1. FORTEO [Suspect]
     Indication: OSTEOPOROSIS
     Dosage: UNK, UNKNOWN
     Route: 065
     Dates: start: 20080201
  2. RITMONORM [Concomitant]
     Indication: ARRHYTHMIA
     Dosage: 300 MG, DAILY (1/D)
     Route: 048
  3. RIVOTRIL [Concomitant]
     Indication: DEPRESSION
     Dosage: 3 GTT, OTHER
     Route: 048
  4. FLUOXETINE HYDROCHLORIDE [Concomitant]
     Indication: DEPRESSION
     Dosage: 20 MG, DAILY (1/D)
     Route: 048
  5. AMITRIPTILINA [Concomitant]
     Indication: DEPRESSION
     Dosage: 25 MG, 2/D
     Route: 048
  6. PURAN T4 [Concomitant]
     Indication: THYROID DISORDER
     Dosage: 100 MG, DAILY (1/D)
     Route: 048
  7. PANTOPRAZOL [Concomitant]
     Indication: GASTRIC DISORDER
     Dosage: 40 MG, DAILY (1/D)
     Route: 048
  8. LOSACOR [Concomitant]
     Indication: HYPERTENSION
     Dosage: 25 MG, DAILY (1/D)
     Route: 048
  9. HYGROTON [Concomitant]
     Indication: HYPERTENSION
     Dosage: 12.5 MG, OTHER
     Route: 065

REACTIONS (3)
  - ASTHMA [None]
  - DYSPNOEA [None]
  - OXYGEN SATURATION DECREASED [None]
